FAERS Safety Report 9087646 (Version 1)
Quarter: 2013Q1

REPORT INFORMATION
  Report Type: Report from Study
  Country: US (occurrence: US)
  Receive Date: 20130130
  Receipt Date: 20130130
  Transmission Date: 20140127
  Serious: No
  Sender: FDA-Public Use
  Company Number: US-ABBOTT-12P-163-0989042-00

PATIENT
  Age: 25 Year
  Sex: Female

DRUGS (4)
  1. HUMIRA [Suspect]
     Indication: PSORIASIS
     Route: 058
     Dates: start: 20120914
  2. HUMIRA [Suspect]
     Dosage: MISFIRE
     Dates: start: 20120921
  3. HUMIRA [Suspect]
     Dates: start: 20120924
  4. MINIPILL [Concomitant]
     Indication: CONTRACEPTION

REACTIONS (9)
  - Drug dose omission [Unknown]
  - Injection site pain [Recovered/Resolved]
  - Injection site pain [Unknown]
  - Injection site bruising [Unknown]
  - Injection site nodule [Unknown]
  - Injection site mass [Recovered/Resolved]
  - Nervousness [Unknown]
  - Anxiety [Unknown]
  - Wrong technique in drug usage process [Unknown]
